FAERS Safety Report 4614692-5 (Version None)
Quarter: 2005Q1

REPORT INFORMATION
  Report Type: 
  Country: None (occurrence: None)
  Receive Date: 20050322
  Receipt Date: 20050310
  Transmission Date: 20050727
  Serious: Yes (Other)
  Sender: FDA-Public Use
  Company Number: FR-JNJFOC-20050302840

PATIENT
  Sex: Male
  Weight: 96 kg

DRUGS (10)
  1. BLINDED; ABCIXIMA [Suspect]
     Indication: MYOCARDIAL INFARCTION
     Route: 042
  2. RETEPLASE [Suspect]
     Route: 042
  3. RETEPLASE [Suspect]
     Indication: MYOCARDIAL INFARCTION
     Route: 042
  4. PLACEBO [Suspect]
     Indication: MYOCARDIAL INFARCTION
     Route: 042
  5. PLAVIX [Concomitant]
     Indication: ACUTE MYOCARDIAL INFARCTION
     Route: 049
  6. KARDEGIC [Concomitant]
     Indication: ACUTE MYOCARDIAL INFARCTION
     Route: 049
  7. LOVENOX [Concomitant]
     Indication: ACUTE MYOCARDIAL INFARCTION
     Route: 058
  8. TRIATEC [Concomitant]
     Indication: ACUTE MYOCARDIAL INFARCTION
     Route: 049
  9. ELISOR [Concomitant]
     Indication: ACUTE MYOCARDIAL INFARCTION
     Route: 049
  10. BISOPROLOL FUMARATE [Concomitant]
     Route: 049

REACTIONS (7)
  - CONDITION AGGRAVATED [None]
  - CORONARY ARTERY STENOSIS [None]
  - DRUG INTERACTION [None]
  - GOUT [None]
  - IATROGENIC INJURY [None]
  - URINARY TRACT INFECTION [None]
  - VASCULAR PSEUDOANEURYSM [None]
